FAERS Safety Report 8510969-1 (Version None)
Quarter: 2012Q3

REPORT INFORMATION
  Report Type: 
  Country: None (occurrence: None)
  Receive Date: 20120716
  Receipt Date: 20120710
  Transmission Date: 20120928
  Serious: Yes (Disabling, Other)
  Sender: FDA-Public Use
  Company Number: US-SANOFI-AVENTIS-2012SA039530

PATIENT
  Age: 77 Year
  Sex: Male
  Weight: 104 kg

DRUGS (21)
  1. INSULIN [Concomitant]
  2. ACTOS [Concomitant]
  3. CRESTOR [Concomitant]
  4. STOOL SOFTENER [Concomitant]
  5. LANTUS [Suspect]
     Dosage: DOSE:50 UNIT(S)
     Route: 058
  6. DIGOXIN [Concomitant]
  7. TRAMADOL HCL [Concomitant]
  8. SOLOSTAR [Suspect]
     Indication: TYPE 2 DIABETES MELLITUS
  9. MAXZIDE [Concomitant]
  10. ZEBETA [Concomitant]
  11. MULTI-VITAMINS [Concomitant]
  12. LANTUS [Suspect]
     Indication: TYPE 2 DIABETES MELLITUS
     Dosage: DOSE:20 UNIT(S)
     Route: 058
  13. CHERATUSSIN AC [Concomitant]
  14. NOVOLOG [Concomitant]
     Dosage: DOSE:100 UNIT(S)
  15. PLAVIX [Concomitant]
  16. LORATADINE [Concomitant]
  17. FIORICET [Concomitant]
  18. ALL OTHER THERAPEUTIC PRODUCTS [Concomitant]
  19. NITROGLYCERIN [Concomitant]
  20. OXYCODONE HCL AND ACETAMINOPHEN [Concomitant]
     Dosage: DOSAGE STRENGTH 5/325
  21. ALL OTHER THERAPEUTIC PRODUCTS [Concomitant]

REACTIONS (8)
  - BLOOD GLUCOSE DECREASED [None]
  - HYPOACUSIS [None]
  - DEVICE DEPLOYMENT ISSUE [None]
  - CARDIOVASCULAR DISORDER [None]
  - INJECTION SITE HAEMATOMA [None]
  - ARTHROPATHY [None]
  - BLOOD GLUCOSE INCREASED [None]
  - CONDITION AGGRAVATED [None]
